FAERS Safety Report 16133413 (Version 1)
Quarter: 2019Q1

REPORT INFORMATION
  Report Type: Spontaneous
  Country: FR (occurrence: FR)
  Receive Date: 20190329
  Receipt Date: 20190329
  Transmission Date: 20190418
  Serious: Yes (Hospitalization)
  Sender: FDA-Public Use
  Company Number: FR-SUN PHARMACEUTICAL INDUSTRIES LTD-2019RR-203456

PATIENT
  Age: 69 Year
  Sex: Female
  Weight: 99 kg

DRUGS (1)
  1. ALLOPURINOL. [Suspect]
     Active Substance: ALLOPURINOL
     Indication: GOUT
     Dosage: ()
     Route: 048
     Dates: start: 20190129

REACTIONS (2)
  - Rash morbilliform [Recovering/Resolving]
  - Hyperthermia [Recovered/Resolved]

NARRATIVE: CASE EVENT DATE: 20190219
